FAERS Safety Report 5764641-1 (Version None)
Quarter: 2008Q2

REPORT INFORMATION
  Report Type: 
  Country: None (occurrence: None)
  Receive Date: 20080611
  Receipt Date: 20080603
  Transmission Date: 20081010
  Serious: Yes (Other)
  Sender: FDA-Public Use
  Company Number: IT-BAYER-200716925GDS

PATIENT
  Age: 74 Year
  Sex: Male
  Weight: 65 kg

DRUGS (8)
  1. SORAFENIB [Suspect]
     Indication: METASTATIC RENAL CELL CARCINOMA
     Route: 048
     Dates: start: 20071112, end: 20071211
  2. SORAFENIB [Suspect]
     Route: 048
     Dates: start: 20070921, end: 20071102
  3. PROLEUKIN [Suspect]
     Indication: METASTATIC RENAL CELL CARCINOMA
  4. FARLUTAL [Concomitant]
     Indication: HORMONE THERAPY
     Route: 048
     Dates: start: 20071021
  5. LIMPIDEX [Concomitant]
     Indication: PROPHYLAXIS AGAINST GASTROINTESTINAL ULCER
     Route: 048
     Dates: start: 20071021
  6. PLASIL [Concomitant]
     Indication: NAUSEA
     Route: 048
     Dates: start: 20071020
  7. VERAPAMIL [Concomitant]
     Indication: HYPERTENSION
     Route: 048
     Dates: start: 20020101
  8. VASERETIC [Concomitant]
     Indication: HYPERTENSION
     Route: 048
     Dates: start: 20020101

REACTIONS (1)
  - URINARY RETENTION [None]
